FAERS Safety Report 10366938 (Version 3)
Quarter: 2014Q4

REPORT INFORMATION
  Report Type: Spontaneous
  Country: DE (occurrence: DE)
  Receive Date: 20140807
  Receipt Date: 20141215
  Transmission Date: 20150528
  Serious: Yes (Life-Threatening, Hospitalization)
  Sender: FDA-Public Use
  Company Number: DE-MERCK-1408DEU002207

PATIENT
  Age: 48 Year
  Sex: Male
  Weight: 80 kg

DRUGS (5)
  1. METFORMIN [Concomitant]
     Active Substance: METFORMIN HYDROCHLORIDE
     Dosage: UNK
  2. ASPIRIN. [Concomitant]
     Active Substance: ASPIRIN
     Dosage: UNK
  3. AMPHETAMINE [Concomitant]
     Active Substance: AMPHETAMINE
     Dosage: UNK
  4. LYRICA [Suspect]
     Active Substance: PREGABALIN
     Indication: POLYNEUROPATHY ALCOHOLIC
     Dosage: 50 MG, UNK
     Route: 048
     Dates: start: 2014, end: 201407
  5. JANUVIA [Suspect]
     Active Substance: SITAGLIPTIN PHOSPHATE
     Indication: TYPE 2 DIABETES MELLITUS
     Dosage: DAILY DOSE 100 MG
     Route: 048
     Dates: start: 201406, end: 201407

REACTIONS (4)
  - Ventricular fibrillation [Not Recovered/Not Resolved]
  - Tachycardia [Recovered/Resolved]
  - Long QT syndrome [Recovered/Resolved]
  - Torsade de pointes [Recovered/Resolved]

NARRATIVE: CASE EVENT DATE: 20140714
